FAERS Safety Report 8024650-9 (Version None)
Quarter: 2011Q4

REPORT INFORMATION
  Report Type: 
  Country: None (occurrence: None)
  Receive Date: 20111130
  Receipt Date: 20110926
  Transmission Date: 20120403
  Serious: Yes (Hospitalization)
  Sender: FDA-Public Use
  Company Number: PHEH2011US0593

PATIENT
  Sex: Female

DRUGS (2)
  1. ACE INHIBITORS (NO INGREDENTS/SUBSTANCES) [Concomitant]
  2. TEKTURNA [Suspect]
     Indication: BLOOD PRESSURE MANAGEMENT
     Dosage: 150 MG

REACTIONS (2)
  - DIARRHOEA [None]
  - DEHYDRATION [None]
